FAERS Safety Report 25245651 (Version 1)
Quarter: 2025Q2

REPORT INFORMATION
  Report Type: Spontaneous
  Country: GB (occurrence: GB)
  Receive Date: 20250428
  Receipt Date: 20250428
  Transmission Date: 20250716
  Serious: Yes (Hospitalization, Other)
  Sender: ORGANON
  Company Number: None

PATIENT
  Age: 67 Year
  Sex: Female

DRUGS (13)
  1. LOSARTAN POTASSIUM [Suspect]
     Active Substance: LOSARTAN POTASSIUM
     Dosage: 50 MILLIGRAM, QD
     Route: 048
  2. OMEPRAZOLE [Suspect]
     Active Substance: OMEPRAZOLE
     Dosage: CHANGED TO LANSOPRAZOLE 15MG BD
     Route: 048
  3. INDAPAMIDE [Suspect]
     Active Substance: INDAPAMIDE
     Dosage: 2.5 MILLIGRAM, QD
     Route: 048
     Dates: start: 202409
  4. BISOPROLOL [Concomitant]
     Active Substance: BISOPROLOL
     Dosage: EXPIRY: 4/2025
     Route: 048
     Dates: start: 20250417
  5. BACLOFEN [Concomitant]
     Active Substance: BACLOFEN
     Dosage: GASTROSTOMY 20 MG THREE TIMES A DAY
  6. BUPRENORPHINE [Concomitant]
     Active Substance: BUPRENORPHINE
     Dosage: 20 MCG/HOUR TOPICAL 1 PATCH ONCE A WEEK ON TUESDAY
     Route: 061
  7. CARBIDOPA\LEVODOPA [Concomitant]
     Active Substance: CARBIDOPA\LEVODOPA
     Dosage: 12.5 MG-50 MG ORAL TABLET TABLET GASTROSTOMY 1 TABLET THREE TIMES A DAY
     Route: 048
  8. MORPHINE SULFATE [Concomitant]
     Active Substance: MORPHINE SULFATE
     Indication: Pain
     Dosage: 10 MG/5 ML ORAL SOLUTION LIQUID GASTROSTOMY 5 MG FOUR TIMES A DAY AS REQUIRED FOR: PAIN
     Route: 048
  9. SENNA LEAF [Concomitant]
     Active Substance: SENNA LEAF
     Dosage: 7.5 MG/5 ML ORAL SYRUP LIQUID GASTROSTOMY 5 ML ONCE A DAY (EVENING)
     Route: 048
  10. LANSOPRAZOLE [Concomitant]
     Active Substance: LANSOPRAZOLE
     Dosage: GASTROSTOMY 15 MG TWICE A DAY
  11. LEVOTHYROXINE [Concomitant]
     Active Substance: LEVOTHYROXINE
     Dosage: 75 MICROGRAM, QD
     Route: 048
  12. AMLODIPINE [Concomitant]
     Active Substance: AMLODIPINE BESYLATE
     Dosage: 10 MILLIGRAM, QD
     Route: 048
     Dates: start: 202409
  13. AMLODIPINE [Concomitant]
     Active Substance: AMLODIPINE BESYLATE
     Dosage: 5 MILLIGRAM, QD
     Dates: end: 202409

REACTIONS (7)
  - Hypokalaemia [Recovered/Resolved with Sequelae]
  - Hyponatraemia [Recovered/Resolved with Sequelae]
  - Osmotic demyelination syndrome [Unknown]
  - Confusional state [Unknown]
  - Osmotic demyelination syndrome [Unknown]
  - Electrolyte imbalance [Unknown]
  - Somnolence [Unknown]

NARRATIVE: CASE EVENT DATE: 20240923
